FAERS Safety Report 5016981-1 (Version None)
Quarter: 2006Q2

REPORT INFORMATION
  Report Type: 
  Country: None (occurrence: None)
  Receive Date: 20060526
  Receipt Date: 20060517
  Transmission Date: 20061013
  Serious: Yes (Hospitalization)
  Sender: FDA-Public Use
  Company Number: 2006-04-1274

PATIENT
  Age: 59 Year
  Sex: Male
  Weight: 88 kg

DRUGS (11)
  1. PEG-INTRON [Suspect]
     Indication: HEPATITIS C
     Dosage: 100-60 MCG QW SUBCUTANEO; SEE IMAGE
     Route: 058
     Dates: start: 20051117, end: 20051117
  2. PEG-INTRON [Suspect]
     Indication: HEPATITIS C
     Dosage: 100-60 MCG QW SUBCUTANEO; SEE IMAGE
     Route: 058
     Dates: start: 20051124, end: 20060413
  3. PEG-INTRON [Suspect]
     Indication: HEPATITIS C
     Dosage: 100-60 MCG QW SUBCUTANEO; SEE IMAGE
     Route: 058
     Dates: start: 20060421, end: 20060428
  4. PEG-INTRON [Suspect]
     Indication: HEPATITIS C
     Dosage: 100-60 MCG QW SUBCUTANEO; SEE IMAGE
     Route: 058
     Dates: start: 20051117
  5. REBETOL [Suspect]
     Indication: CHRONIC HEPATITIS
     Dosage: 800 - 400 MCG ORAL; SEE IMAGE
     Route: 048
     Dates: start: 20051117, end: 20051208
  6. REBETOL [Suspect]
     Indication: CHRONIC HEPATITIS
     Dosage: 800 - 400 MCG ORAL; SEE IMAGE
     Route: 048
     Dates: start: 20051209, end: 20060427
  7. REBETOL [Suspect]
     Indication: CHRONIC HEPATITIS
     Dosage: 800 - 400 MCG ORAL; SEE IMAGE
     Route: 048
     Dates: start: 20051117
  8. REBETOL [Suspect]
     Indication: CHRONIC HEPATITIS
     Dosage: 800 - 400 MCG ORAL; SEE IMAGE
     Route: 048
     Dates: start: 20060428
  9. NAIXAN CAPSULES [Concomitant]
  10. ALOSITOL TABLETS [Concomitant]
  11. OXATOMIDE [Concomitant]

REACTIONS (1)
  - FACIAL PALSY [None]
